FAERS Safety Report 25260296 (Version 1)
Quarter: 2025Q2

REPORT INFORMATION
  Report Type: Spontaneous
  Country: US (occurrence: None)
  Receive Date: 20250501
  Receipt Date: 20250501
  Transmission Date: 20250716
  Serious: Yes (Hospitalization)
  Sender: FDA-CTU
  Company Number: None

PATIENT
  Age: 93 Year
  Sex: Male
  Weight: 78 kg

DRUGS (2)
  1. PIPERACILLIN SODIUM\TAZOBACTAM SODIUM [Suspect]
     Active Substance: PIPERACILLIN SODIUM\TAZOBACTAM SODIUM
     Indication: Urinary tract infection
     Dates: start: 20250126, end: 20250127
  2. EPINEPHRINE [Suspect]
     Active Substance: EPINEPHRINE

REACTIONS (7)
  - Anaphylactic reaction [None]
  - Cough [None]
  - Dyspnoea [None]
  - Wheezing [None]
  - Periorbital swelling [None]
  - Tachycardia [None]
  - Tachypnoea [None]

NARRATIVE: CASE EVENT DATE: 20250127
